FAERS Safety Report 14159205 (Version 3)
Quarter: 2017Q4

REPORT INFORMATION
  Report Type: Spontaneous
  Country: JP (occurrence: JP)
  Receive Date: 20171103
  Receipt Date: 20171128
  Transmission Date: 20180321
  Serious: Yes (Death, Other)
  Sender: FDA-Public Use
  Company Number: JP-PFIZER INC-2017474198

PATIENT
  Age: 83 Year
  Sex: Male

DRUGS (7)
  1. URIEF [Concomitant]
     Active Substance: SILODOSIN
     Dosage: 8 MG, 1X/DAY
     Route: 048
  2. PREDONINE [Concomitant]
     Active Substance: PREDNISOLONE
     Dosage: 10 MG, 1X/DAY
     Route: 048
  3. GONAX [Suspect]
     Active Substance: DEGARELIX
     Dosage: 80 MG, ONCE EVERY FOUR WEEKS
     Route: 058
     Dates: start: 20170922, end: 20170922
  4. GONAX [Suspect]
     Active Substance: DEGARELIX
     Indication: PROSTATE CANCER
     Dosage: 240 MG, ONCE EVERY FOUR WEEKS
     Route: 058
     Dates: start: 20170825, end: 20170825
  5. CELECOX [Suspect]
     Active Substance: CELECOXIB
     Indication: BACK PAIN
     Dosage: 200 MG, 1X/DAY
     Route: 048
     Dates: start: 20170728
  6. ZYTIGA [Concomitant]
     Active Substance: ABIRATERONE ACETATE
     Dosage: 1000 MG, 1X/DAY
     Route: 048
  7. PROMAC /01312301/ [Concomitant]
     Active Substance: POLAPREZINC
     Dosage: 150 MG, 1X/DAY
     Route: 048

REACTIONS (1)
  - Lymphangiosis carcinomatosa [Fatal]
